FAERS Safety Report 20327282 (Version 1)
Quarter: 2022Q1

REPORT INFORMATION
  Report Type: Spontaneous
  Country: US (occurrence: None)
  Receive Date: 20220112
  Receipt Date: 20220112
  Transmission Date: 20220424
  Serious: Yes (Hospitalization)
  Sender: FDA-Public Use
  Company Number: None

PATIENT
  Age: 73 Year
  Sex: Male
  Weight: 109 kg

DRUGS (1)
  1. METOCLOPRAMIDE HYDROCHLORIDE [Suspect]
     Active Substance: METOCLOPRAMIDE HYDROCHLORIDE
     Indication: Respiratory disorder prophylaxis
     Dosage: FREQUENCY : ONCE;?
     Route: 042
     Dates: start: 20211027, end: 20211027

REACTIONS (1)
  - Dystonia [None]

NARRATIVE: CASE EVENT DATE: 20211027
